FAERS Safety Report 5823168-9 (Version None)
Quarter: 2008Q3

REPORT INFORMATION
  Report Type: 
  Country: None (occurrence: None)
  Receive Date: 20080725
  Receipt Date: 20080715
  Transmission Date: 20090109
  Serious: Yes (Other)
  Sender: FDA-Public Use
  Company Number: PHHY2008AU14041

PATIENT
  Age: 81 Year
  Sex: Female

DRUGS (3)
  1. FAMVIR [Suspect]
     Indication: HERPES ZOSTER
     Dosage: 250 MG, TID
  2. MORPHINE [Concomitant]
     Dosage: 20 MG/DAY
  3. MORPHINE [Concomitant]
     Dosage: 40 MG, BID

REACTIONS (2)
  - FEELING ABNORMAL [None]
  - HALLUCINATION [None]
